FAERS Safety Report 18771378 (Version 5)
Quarter: 2021Q2

REPORT INFORMATION
  Report Type: Spontaneous
  Country: US (occurrence: US)
  Receive Date: 20210122
  Receipt Date: 20210630
  Transmission Date: 20210717
  Serious: Yes (Other)
  Sender: FDA-Public Use
  Company Number: US-BIOVITRUM-2021US0566

PATIENT
  Age: 50 Year
  Sex: Female

DRUGS (2)
  1. KINERET [Suspect]
     Active Substance: ANAKINRA
     Route: 058
     Dates: start: 202012
  2. KINERET [Suspect]
     Active Substance: ANAKINRA
     Indication: ANKYLOSING SPONDYLITIS
     Route: 058
     Dates: start: 20201229

REACTIONS (7)
  - Hypoaesthesia [Unknown]
  - Off label use [Unknown]
  - COVID-19 [Unknown]
  - Swelling [Unknown]
  - Paraesthesia [Unknown]
  - Product dose omission issue [Unknown]
  - Intervertebral disc protrusion [Unknown]

NARRATIVE: CASE EVENT DATE: 202012
